FAERS Safety Report 4645813-6 (Version None)
Quarter: 2005Q2

REPORT INFORMATION
  Report Type: 
  Country: None (occurrence: None)
  Receive Date: 20050425
  Receipt Date: 20050418
  Transmission Date: 20051028
  Serious: Yes (Life-Threatening, Other)
  Sender: FDA-Public Use
  Company Number: 200510139BCA

PATIENT
  Age: 61 Year
  Sex: Male

DRUGS (11)
  1. AVELOX [Suspect]
     Indication: SINUSITIS
     Dosage: 400 MG, QD, ORAL
     Route: 048
     Dates: start: 20050311, end: 20050321
  2. NASACORT [Concomitant]
  3. FLOVENT [Concomitant]
  4. SALBUTAMOL [Concomitant]
  5. CLAVULIN [Concomitant]
  6. HYDROCHLOROTHIAZIDE [Concomitant]
  7. GLUCOPHAGE [Concomitant]
  8. ALTACE [Concomitant]
  9. GLYBURIDE [Concomitant]
  10. ASPIRIN [Concomitant]
  11. LIPITOR [Concomitant]

REACTIONS (7)
  - ANOREXIA [None]
  - FATIGUE [None]
  - FUNGAL INFECTION [None]
  - HEPATOTOXICITY [None]
  - JAUNDICE [None]
  - NAUSEA [None]
  - WEIGHT DECREASED [None]
